FAERS Safety Report 19733390 (Version 1)
Quarter: 2021Q3

REPORT INFORMATION
  Report Type: Report from Study
  Country: None (occurrence: US)
  Receive Date: 20210823
  Receipt Date: 20210823
  Transmission Date: 20211014
  Serious: Yes (Hospitalization, Other)
  Sender: FDA-Public Use
  Company Number: US-ABBVIE-21K-163-4032119-00

PATIENT
  Age: 70 Year
  Sex: Male
  Weight: 89.44 kg

DRUGS (2)
  1. SKYRIZI [Suspect]
     Active Substance: RISANKIZUMAB-RZAA
     Indication: PSORIASIS
     Dosage: DRUG STOP DATE WAS FEBRUARY OR MARCH 2021
     Route: 058
     Dates: start: 2020, end: 2021
  2. COSENTYX [Concomitant]
     Active Substance: SECUKINUMAB
     Indication: PRODUCT USED FOR UNKNOWN INDICATION

REACTIONS (5)
  - Knee arthroplasty [Unknown]
  - Staphylococcal sepsis [Recovering/Resolving]
  - Peripheral swelling [Unknown]
  - Pyrexia [Unknown]
  - Sepsis [Recovered/Resolved]

NARRATIVE: CASE EVENT DATE: 20210201
